FAERS Safety Report 4952088-7 (Version None)
Quarter: 2006Q1

REPORT INFORMATION
  Report Type: 
  Country: None (occurrence: None)
  Receive Date: 20060320
  Receipt Date: 20060307
  Transmission Date: 20060701
  Serious: Yes (Hospitalization)
  Sender: FDA-Public Use
  Company Number: GXKR2006GB01427

PATIENT
  Age: 45 Year
  Sex: Male

DRUGS (1)
  1. ANAGRELIDE (NGX) (ANAGRELIDE) [Suspect]
     Indication: THROMBOCYTHAEMIA
     Dosage: 2MG, BID

REACTIONS (7)
  - ALVEOLITIS ALLERGIC [None]
  - HAEMOGLOBIN DECREASED [None]
  - HYPOTENSION [None]
  - MALAISE [None]
  - PLEURAL EFFUSION [None]
  - PNEUMONIA STREPTOCOCCAL [None]
  - RENAL IMPAIRMENT [None]
